FAERS Safety Report 4490885-5 (Version None)
Quarter: 2004Q4

REPORT INFORMATION
  Report Type: 
  Country: None (occurrence: None)
  Receive Date: 20041027
  Receipt Date: 20041011
  Transmission Date: 20050328
  Serious: Yes (Death)
  Sender: FDA-Public Use
  Company Number: L04-SWE-06630-01

PATIENT
  Age: 78 Year
  Sex: Male

DRUGS (3)
  1. CITALOPRAM [Suspect]
  2. VERAPAMIL [Concomitant]
  3. NORVERAPAMIL [Concomitant]

REACTIONS (3)
  - ACCIDENT [None]
  - INTRACRANIAL INJURY [None]
  - SKULL FRACTURE [None]
